FAERS Safety Report 17454124 (Version 1)
Quarter: 2020Q1

REPORT INFORMATION
  Report Type: Spontaneous
  Country: US (occurrence: US)
  Receive Date: 20200211
  Receipt Date: 20200211
  Transmission Date: 20200409
  Serious: Yes (Hospitalization)
  Sender: FDA-Public Use
  Company Number: None

PATIENT
  Age: 19 Year
  Sex: Male

DRUGS (9)
  1. PROAIR HFA [Concomitant]
     Active Substance: ALBUTEROL SULFATE
  2. CAYSTON [Concomitant]
     Active Substance: AZTREONAM
  3. PULMOZYME [Suspect]
     Active Substance: DORNASE ALFA
     Indication: CYSTIC FIBROSIS
     Route: 055
     Dates: start: 20180307
  4. AMOXK CLAV [Concomitant]
  5. ZENPEP [Concomitant]
     Active Substance: PANCRELIPASE AMYLASE\PANCRELIPASE LIPASE\PANCRELIPASE PROTEASE
  6. OSELTAMVIR [Concomitant]
     Active Substance: OSELTAMIVIR
  7. PREDNISONE. [Concomitant]
     Active Substance: PREDNISONE
  8. ALBUTEROL. [Concomitant]
     Active Substance: ALBUTEROL
  9. CEFDINIR. [Concomitant]
     Active Substance: CEFDINIR

REACTIONS (1)
  - Infective pulmonary exacerbation of cystic fibrosis [None]

NARRATIVE: CASE EVENT DATE: 20200204
